FAERS Safety Report 7589937-2 (Version None)
Quarter: 2011Q3

REPORT INFORMATION
  Report Type: 
  Country: None (occurrence: None)
  Receive Date: 20110705
  Receipt Date: 20110614
  Transmission Date: 20111222
  Serious: Yes (Hospitalization)
  Sender: FDA-Public Use
  Company Number: A0652184A

PATIENT
  Age: 61 Year
  Sex: Male
  Weight: 73.6 kg

DRUGS (7)
  1. AVANDIA [Suspect]
     Dosage: 8MG PER DAY
     Route: 048
     Dates: start: 20050524
  2. ZETIA [Concomitant]
  3. FAMOTIDINE [Concomitant]
  4. LIPITOR [Concomitant]
  5. GLIPIZIDE [Concomitant]
  6. NORVASC [Concomitant]
  7. CADUET [Concomitant]

REACTIONS (1)
  - MYOCARDIAL INFARCTION [None]
